FAERS Safety Report 23311653 (Version 1)
Quarter: 2023Q4

REPORT INFORMATION
  Report Type: Spontaneous
  Country: US (occurrence: US)
  Receive Date: 20231219
  Receipt Date: 20231219
  Transmission Date: 20240110
  Serious: Yes (Other)
  Sender: FDA-Public Use
  Company Number: US-ESPERIONTHERAPEUTICS-2023USA01473

PATIENT

DRUGS (1)
  1. NEXLIZET [Suspect]
     Active Substance: BEMPEDOIC ACID\EZETIMIBE
     Indication: Low density lipoprotein increased
     Dosage: UNKNOWN
     Route: 065

REACTIONS (4)
  - Pain [Recovered/Resolved]
  - Muscle rupture [Recovered/Resolved]
  - Myalgia [Recovered/Resolved]
  - Tendon rupture [Recovered/Resolved]
